FAERS Safety Report 6661370-7 (Version None)
Quarter: 2010Q1

REPORT INFORMATION
  Report Type: 
  Country: None (occurrence: None)
  Receive Date: 20100331
  Receipt Date: 20100322
  Transmission Date: 20100710
  Serious: Yes (Other)
  Sender: FDA-Public Use
  Company Number: PHHY2009DE26492

PATIENT
  Sex: Female

DRUGS (2)
  1. EXTAVIA [Suspect]
     Indication: MULTIPLE SCLEROSIS
     Dosage: 250 MCG
     Route: 058
     Dates: start: 20090626, end: 20090626
  2. EXTAVIA [Suspect]
     Dosage: 250 MCG
     Route: 058
     Dates: start: 20090718, end: 20090901

REACTIONS (10)
  - CHILLS [None]
  - DRUG TOXICITY [None]
  - DYSGEUSIA [None]
  - EYELID FUNCTION DISORDER [None]
  - GENERAL PHYSICAL HEALTH DETERIORATION [None]
  - HEADACHE [None]
  - HYPERHIDROSIS [None]
  - INFLUENZA LIKE ILLNESS [None]
  - PYREXIA [None]
  - SCLERAL DISCOLOURATION [None]
